FAERS Safety Report 10487536 (Version 2)
Quarter: 2015Q1

REPORT INFORMATION
  Report Type: Report from Study
  Country: FR (occurrence: FR)
  Receive Date: 20141001
  Receipt Date: 20150205
  Transmission Date: 20150720
  Serious: Yes (Hospitalization)
  Sender: FDA-Public Use
  Company Number: FR-BRISTOL-MYERS SQUIBB COMPANY-21426739

PATIENT
  Age: 40 Year
  Sex: Female
  Weight: 55 kg

DRUGS (5)
  1. LYRICA [Concomitant]
     Active Substance: PREGABALIN
     Indication: PAIN
     Dosage: 100 MG, TOTAL 50 MG BID
     Route: 065
     Dates: start: 20140617
  2. OXYNORM [Concomitant]
     Active Substance: OXYCODONE HYDROCHLORIDE
     Indication: PAIN
     Dosage: 5 MG, PRN
     Route: 048
     Dates: start: 20140708
  3. TIORFAN [Concomitant]
     Active Substance: RACECADOTRIL
     Indication: DIARRHOEA
     Dosage: 1 DF, PRN
     Route: 048
     Dates: start: 20140717
  4. CETUXIMAB [Suspect]
     Active Substance: CETUXIMAB
     Indication: NEOPLASM
     Dosage: 393 MG, QWK
     Route: 042
     Dates: start: 20140711, end: 20140717
  5. AFATINIB [Suspect]
     Active Substance: AFATINIB
     Indication: NEOPLASM
     Dosage: TREATMENT CYCLE 21 DAYS.
     Route: 048
     Dates: start: 20140711

REACTIONS (1)
  - Proteinuria [Recovered/Resolved]

NARRATIVE: CASE EVENT DATE: 20140728
